FAERS Safety Report 12962352 (Version 2)
Quarter: 2016Q4

REPORT INFORMATION
  Report Type: Report from Study
  Country: US (occurrence: US)
  Receive Date: 20161121
  Receipt Date: 20161123
  Transmission Date: 20170207
  Serious: Yes (Other)
  Sender: FDA-Public Use
  Company Number: US-GILEAD-2016-0242157

PATIENT
  Age: 37 Year
  Sex: Male

DRUGS (1)
  1. LEDIPASVIR/SOFOSBUVIR [Suspect]
     Active Substance: LEDIPASVIR\SOFOSBUVIR
     Indication: HEPATITIS C
     Dosage: 1 DF, QD
     Route: 048
     Dates: start: 20150302, end: 20150601

REACTIONS (14)
  - Depression [Recovering/Resolving]
  - Anxiety [Not Recovered/Not Resolved]
  - Nausea [Unknown]
  - Feeling abnormal [Unknown]
  - Thinking abnormal [Unknown]
  - Blood testosterone decreased [Not Recovered/Not Resolved]
  - Confusional state [Not Recovered/Not Resolved]
  - Dyspepsia [Not Recovered/Not Resolved]
  - Suicide threat [Unknown]
  - Abdominal pain [Unknown]
  - Headache [Not Recovered/Not Resolved]
  - Abdominal distension [Unknown]
  - Insomnia [Not Recovered/Not Resolved]
  - Fatigue [Not Recovered/Not Resolved]

NARRATIVE: CASE EVENT DATE: 2015
